FAERS Safety Report 18201882 (Version 2)
Quarter: 2020Q3

REPORT INFORMATION
  Report Type: Spontaneous
  Country: JP (occurrence: JP)
  Receive Date: 20200827
  Receipt Date: 20200908
  Transmission Date: 20201103
  Serious: Yes (Death, Hospitalization, Other)
  Sender: FDA-Public Use
  Company Number: JP-FERRINGPH-2020FE05677

PATIENT
  Age: 88 Year
  Sex: Male
  Weight: 47 kg

DRUGS (1)
  1. MINIRINMELT [Suspect]
     Active Substance: DESMOPRESSIN ACETATE
     Indication: NOCTURIA
     Dosage: 25 UG
     Route: 065
     Dates: start: 20200319, end: 20200330

REACTIONS (4)
  - Labelled drug-disease interaction medication error [Recovered/Resolved]
  - Neoplasm malignant [Fatal]
  - Contraindicated product administered [Recovered/Resolved]
  - Hyponatraemia [Recovered/Resolved]
